FAERS Safety Report 4322746-6 (Version None)
Quarter: 2004Q1

REPORT INFORMATION
  Report Type: 
  Country: None (occurrence: None)
  Receive Date: 20040324
  Receipt Date: 20040227
  Transmission Date: 20041129
  Serious: Yes (Other)
  Sender: FDA-Public Use
  Company Number: JP-GLAXOSMITHKLINE-B0325119A

PATIENT
  Age: 22 Year
  Sex: Female

DRUGS (7)
  1. ZOVIRAX [Suspect]
     Indication: ENCEPHALITIS HERPES
     Dosage: 250MG TWICE PER DAY
     Route: 042
     Dates: start: 20040120, end: 20040123
  2. CARBAMAZEPINE [Concomitant]
     Indication: EPILEPSY
     Dosage: 200MG PER DAY
     Route: 048
     Dates: start: 20040120
  3. PHENYTOIN SODIUM [Concomitant]
     Indication: EPILEPSY
     Route: 042
     Dates: start: 20040120
  4. MIDAZOLAM HCL [Concomitant]
     Indication: SEDATION
     Route: 042
     Dates: start: 20040120, end: 20040121
  5. RANITIDINE HYDROCHLORIDE [Concomitant]
     Indication: GASTRIC ULCER
     Route: 042
     Dates: start: 20040120, end: 20040126
  6. LACTATED RINGER'S [Concomitant]
     Indication: FLUID REPLACEMENT
     Dosage: 2500ML PER DAY
     Route: 042
     Dates: start: 20040101, end: 20040130
  7. MULTI-VITAMINS [Concomitant]
     Indication: HYPOVITAMINOSIS
     Route: 042
     Dates: start: 20040120, end: 20040125

REACTIONS (5)
  - BLOOD CREATINE PHOSPHOKINASE INCREASED [None]
  - BODY TEMPERATURE INCREASED [None]
  - CHROMATURIA [None]
  - MYOGLOBINURIA [None]
  - RHABDOMYOLYSIS [None]
